FAERS Safety Report 9340673 (Version 1)
Quarter: 2013Q2

REPORT INFORMATION
  Report Type: Spontaneous
  Country: US (occurrence: US)
  Receive Date: 20130610
  Receipt Date: 20130610
  Transmission Date: 20140414
  Serious: Yes (Death, Life-Threatening, Hospitalization)
  Sender: FDA-Public Use
  Company Number: US-JNJFOC-20130522509

PATIENT
  Sex: 0

DRUGS (3)
  1. METHYLPHENIDATE HYDROCHLORIDE [Suspect]
     Indication: PRODUCT USED FOR UNKNOWN INDICATION
     Route: 048
  2. INFLIXIMAB [Suspect]
     Indication: PRODUCT USED FOR UNKNOWN INDICATION
     Route: 042
  3. ISOTRETINOIN [Suspect]
     Indication: PRODUCT USED FOR UNKNOWN INDICATION
     Route: 065

REACTIONS (7)
  - Pneumonia [Fatal]
  - Dyspnoea [Fatal]
  - Convulsion [Unknown]
  - Vomiting [Unknown]
  - Pyrexia [Unknown]
  - Product quality issue [Unknown]
  - Drug ineffective [Unknown]
